FAERS Safety Report 8351326-0 (Version None)
Quarter: 2012Q2

REPORT INFORMATION
  Report Type: 
  Country: None (occurrence: None)
  Receive Date: 20120510
  Receipt Date: 20120502
  Transmission Date: 20120825
  Serious: Yes (Death, Hospitalization)
  Sender: FDA-Public Use
  Company Number: FR-BAXTER-2012BAX004448

PATIENT
  Sex: Female

DRUGS (8)
  1. NAVELBINE [Suspect]
     Indication: BREAST CANCER METASTATIC
     Route: 065
     Dates: start: 20111001, end: 20111101
  2. CRESTOR [Concomitant]
     Route: 065
  3. TAXOL [Suspect]
     Indication: BREAST CANCER METASTATIC
     Route: 065
     Dates: start: 20110201
  4. CLASTOBAN [Suspect]
     Indication: BREAST CANCER METASTATIC
     Route: 065
     Dates: start: 20081101
  5. APROVEL [Concomitant]
     Route: 065
  6. CYCLOPHOSPHAMIDE [Suspect]
     Indication: BREAST CANCER METASTATIC
     Dosage: 2 TABS
     Route: 065
     Dates: start: 20110801
  7. PLAVIX [Concomitant]
     Route: 065
  8. NEXIUM [Concomitant]
     Route: 065

REACTIONS (2)
  - LIVER INJURY [None]
  - RENAL FAILURE ACUTE [None]
